FAERS Safety Report 24108717 (Version 2)
Quarter: 2024Q4

REPORT INFORMATION
  Report Type: Spontaneous
  Country: US (occurrence: US)
  Receive Date: 20240718
  Receipt Date: 20241008
  Transmission Date: 20250115
  Serious: Yes (Hospitalization, Other)
  Sender: RANBAXY
  Company Number: US-SUN PHARMACEUTICAL INDUSTRIES LTD-2024R1-457111

PATIENT
  Age: 2 Year
  Sex: Female

DRUGS (2)
  1. BACTRIM [Suspect]
     Active Substance: SULFAMETHOXAZOLE\TRIMETHOPRIM
     Indication: Nocardiosis
     Dosage: UNK (AT AN INCREASED DOSE)
     Route: 065
  2. MUPIROCIN [Concomitant]
     Active Substance: MUPIROCIN
     Indication: Nocardiosis
     Dosage: UNK
     Route: 065

REACTIONS (1)
  - Drug eruption [Unknown]
